FAERS Safety Report 5188150-6 (Version None)
Quarter: 2006Q4

REPORT INFORMATION
  Report Type: 
  Country: None (occurrence: None)
  Receive Date: 20061221
  Receipt Date: 20020104
  Transmission Date: 20070319
  Serious: Yes (Hospitalization)
  Sender: FDA-Public Use
  Company Number: FR-ROCHE-304381

PATIENT
  Age: 4 Day
  Sex: Female

DRUGS (6)
  1. INVIRASE [Suspect]
     Dosage: FROM 29TH WEEK.
     Dates: start: 19971112
  2. VIDEX [Suspect]
     Dosage: FROM 2ND WEEK OF GESTATION TO 10TH WEEK.
     Dates: start: 19970529
  3. RETROVIR [Suspect]
     Dosage: FROM 10TH WEEK AND AN INFUSION WAS GIVEN AT DELIVERY (DOSE UNSPECIFIED).
  4. CRIXIVAN [Suspect]
     Dosage: FROM 2ND WEEK OF GESTATION TO 10TH WEEK.
     Dates: start: 19970529, end: 19970701
  5. EPIVIR [Suspect]
     Dosage: FROM 29TH WEEK.
     Dates: start: 19971112
  6. ZERIT [Suspect]
     Dosage: FROM 2ND WEEK OF GESTATION TO 10TH WEEK.
     Dates: start: 19970529

REACTIONS (6)
  - ANAEMIA MACROCYTIC [None]
  - DRUG EXPOSURE DURING PREGNANCY [None]
  - FOETAL GROWTH RETARDATION [None]
  - NEUTROPENIA [None]
  - NUCLEAR MAGNETIC RESONANCE IMAGING BRAIN ABNORMAL [None]
  - RHINITIS [None]
